FAERS Safety Report 5167395-5 (Version None)
Quarter: 2006Q4

REPORT INFORMATION
  Report Type: 
  Country: None (occurrence: None)
  Receive Date: 20061130
  Receipt Date: 20061117
  Transmission Date: 20070319
  Serious: Yes (Hospitalization, Other)
  Sender: FDA-Public Use
  Company Number: 2006143676

PATIENT
  Sex: Female

DRUGS (6)
  1. PREDNISOLONE [Suspect]
     Indication: TEMPORAL ARTERITIS
     Dosage: 10 MG, ORAL
     Route: 048
  2. AZATHIOPRINE [Concomitant]
  3. CALCICHEW-D3 (CALCIUM CARBONATE, COLECALCIFEROL) [Concomitant]
  4. FOSAMAX [Concomitant]
  5. METHOTREXATE [Concomitant]
  6. SIMVASTATIN [Concomitant]

REACTIONS (8)
  - BACK PAIN [None]
  - DIZZINESS [None]
  - DYSPNOEA [None]
  - HYPOAESTHESIA [None]
  - NAUSEA [None]
  - ORAL PAIN [None]
  - RASH [None]
  - TREMOR [None]
